FAERS Safety Report 18628111 (Version 1)
Quarter: 2020Q4

REPORT INFORMATION
  Report Type: Spontaneous
  Country: ES (occurrence: ES)
  Receive Date: 20201217
  Receipt Date: 20201217
  Transmission Date: 20210114
  Serious: Yes (Life-Threatening, Hospitalization)
  Sender: FDA-Public Use
  Company Number: ES-TEVA-2020-ES-1857681

PATIENT
  Age: 73 Year
  Sex: Male

DRUGS (7)
  1. OMEPRAZOL [Concomitant]
     Active Substance: OMEPRAZOLE
     Dosage: 1 DOSAGE FORMS DAILY; 1-0-0-0
     Route: 048
     Dates: start: 20170718, end: 20200720
  2. METFORMINA [Suspect]
     Active Substance: METFORMIN HYDROCHLORIDE
     Indication: TYPE 2 DIABETES MELLITUS
     Dosage: 7.65 GRAM DAILY; 1-1-1-0
     Route: 048
     Dates: start: 20160309, end: 20200720
  3. PRANDIN 1 MG, COMPRIMIDOS, 90 COMPRIMIDOS [Concomitant]
     Indication: TYPE 2 DIABETES MELLITUS
     Dosage: 2 DOSAGE FORMS DAILY; 1-0-1-0
     Route: 048
     Dates: start: 20150305, end: 20150320
  4. FORXIGA 10 MG COMPRIMIDOS RECUBIERTOS CON PELICULA , 28 COMPRIMIDOS [Concomitant]
     Indication: TYPE 2 DIABETES MELLITUS
     Dosage: 10 MILLIGRAM DAILY; 1-0-0-0
     Route: 048
     Dates: start: 20190219, end: 20200720
  5. TRYPTIZOL [Concomitant]
     Active Substance: AMITRIPTYLINE HYDROCHLORIDE
     Dosage: 1 DOSAGE FORMS DAILY; 0-0-1-0
     Dates: start: 20190415
  6. OZEMPIC 1 MG SOLUCION INYECTABLE EN PLUMA PRECARGADA, 1 PLUMA PRECARGA [Concomitant]
     Indication: TYPE 2 DIABETES MELLITUS
     Dosage: 1 EVERY 7 DAYS
     Dates: start: 20200419, end: 20200720
  7. ACFOL 5 MG COMPRIMIDOS , 28 COMPRIMIDOS [Concomitant]
     Dosage: 1 MILLIGRAM DAILY; 1-0-0-0
     Dates: start: 20200625, end: 20200720

REACTIONS (2)
  - Shock [Recovered/Resolved]
  - Lactic acidosis [Recovered/Resolved with Sequelae]

NARRATIVE: CASE EVENT DATE: 20200720
